FAERS Safety Report 19959907 (Version 1)
Quarter: 2021Q4

REPORT INFORMATION
  Report Type: Spontaneous
  Country: US (occurrence: US)
  Receive Date: 20211015
  Receipt Date: 20211015
  Transmission Date: 20220304
  Serious: Yes (Other)
  Sender: FDA-Public Use
  Company Number: None

PATIENT
  Age: 65 Year
  Sex: Female
  Weight: 104.3 kg

DRUGS (2)
  1. REGEN-COV [Suspect]
     Active Substance: CASIRIVIMAB\IMDEVIMAB
     Route: 041
     Dates: start: 20211014, end: 20211014
  2. 0.9% sodium chloride IV solution [Concomitant]
     Dates: start: 20211014, end: 20211014

REACTIONS (6)
  - Throat irritation [None]
  - Pruritus [None]
  - Infusion related reaction [None]
  - Rash erythematous [None]
  - Rash [None]
  - Feeling hot [None]

NARRATIVE: CASE EVENT DATE: 20211014
